FAERS Safety Report 8517948-9 (Version None)
Quarter: 2012Q3

REPORT INFORMATION
  Report Type: 
  Country: None (occurrence: None)
  Receive Date: 20120718
  Receipt Date: 20110728
  Transmission Date: 20120928
  Serious: No
  Sender: FDA-Public Use
  Company Number: US-BRISTOL-MYERS SQUIBB COMPANY-15931744

PATIENT
  Age: 71 Year
  Sex: Female

DRUGS (4)
  1. ATENOLOL [Concomitant]
  2. LASIX [Concomitant]
  3. COUMADIN [Suspect]
  4. NITROGLYCERIN [Concomitant]

REACTIONS (2)
  - INTERNATIONAL NORMALISED RATIO INCREASED [None]
  - DIZZINESS [None]
